FAERS Safety Report 15578948 (Version 1)
Quarter: 2018Q4

REPORT INFORMATION
  Report Type: Spontaneous
  Country: IT (occurrence: IT)
  Receive Date: 20181102
  Receipt Date: 20181102
  Transmission Date: 20190205
  Serious: Yes (Other)
  Sender: FDA-Public Use
  Company Number: IT-NOVOPROD-629284

PATIENT
  Age: 13 Year
  Sex: Male
  Weight: 55 kg

DRUGS (3)
  1. NOVORAPID [Suspect]
     Active Substance: INSULIN ASPART
     Indication: TYPE 1 DIABETES MELLITUS
     Dosage: 10 IU (CUMULATIVE DOSE TO FIRST REACTION:2760 IU)
     Route: 058
     Dates: start: 20180101, end: 20181004
  2. LANTUS [Suspect]
     Active Substance: INSULIN GLARGINE
     Indication: TYPE 1 DIABETES MELLITUS
     Dosage: 20 IU (CUMULATIVE DOSE TO FIRST REACTION: 5520 IU)
     Route: 058
     Dates: start: 20180101, end: 20181004
  3. HUMALOG [Suspect]
     Active Substance: INSULIN LISPRO
     Indication: TYPE 1 DIABETES MELLITUS
     Dosage: 11 IU (CUMULATIVE DOSE TO FIRST REACTION: 3036 IU)
     Route: 058
     Dates: start: 20180101, end: 20181004

REACTIONS (5)
  - Vertigo [Unknown]
  - Presyncope [Unknown]
  - Hypoglycaemia [Unknown]
  - Vision blurred [Unknown]
  - Cold sweat [Unknown]

NARRATIVE: CASE EVENT DATE: 20181004
